FAERS Safety Report 10384310 (Version 1)
Quarter: 2014Q3

REPORT INFORMATION
  Report Type: Spontaneous
  Country: US (occurrence: US)
  Receive Date: 20140814
  Receipt Date: 20140814
  Transmission Date: 20150326
  Serious: No
  Sender: FDA-Public Use
  Company Number: US-PFIZER INC-2014224631

PATIENT
  Age: 39 Year
  Sex: Female

DRUGS (5)
  1. BIAXIN [Suspect]
     Active Substance: CLARITHROMYCIN
  2. LYRICA [Suspect]
     Active Substance: PREGABALIN
     Dosage: UNK
  3. WELLBUTRIN [Suspect]
     Active Substance: BUPROPION HYDROCHLORIDE
  4. BUPROPION HYDROBROMIDE [Suspect]
     Active Substance: BUPROPION HYDROBROMIDE
  5. LATUDA [Suspect]
     Active Substance: LURASIDONE HYDROCHLORIDE

REACTIONS (1)
  - Drug hypersensitivity [Unknown]
